FAERS Safety Report 7350791-5 (Version None)
Quarter: 2011Q1

REPORT INFORMATION
  Report Type: 
  Country: None (occurrence: None)
  Receive Date: 20110314
  Receipt Date: 20110303
  Transmission Date: 20110831
  Serious: Yes (Hospitalization)
  Sender: FDA-Public Use
  Company Number: US-JNJFOC-20110302225

PATIENT
  Sex: Female
  Weight: 106.14 kg

DRUGS (3)
  1. REMICADE [Suspect]
     Indication: CROHN'S DISEASE
     Route: 042
  2. FENTANYL-100 [Concomitant]
     Indication: PAIN
     Route: 062
  3. OXYCODONE HCL [Concomitant]
     Indication: PAIN
     Route: 048

REACTIONS (10)
  - HYPERSOMNIA [None]
  - BIPOLAR DISORDER [None]
  - VISUAL IMPAIRMENT [None]
  - CROHN'S DISEASE [None]
  - GASTROINTESTINAL HAEMORRHAGE [None]
  - MALAISE [None]
  - EATING DISORDER [None]
  - HERNIA [None]
  - MANIA [None]
  - WEIGHT DECREASED [None]
